FAERS Safety Report 9464659 (Version 2)
Quarter: 2014Q1

REPORT INFORMATION
  Report Type: Spontaneous
  Country: US (occurrence: US)
  Receive Date: 20130819
  Receipt Date: 20140310
  Transmission Date: 20141002
  Serious: Yes (Hospitalization)
  Sender: FDA-Public Use
  Company Number: US-B.I. PHARMACEUTICALS,INC./RIDGEFIELD-2013-BI-25323BP

PATIENT
  Age: 82 Year
  Sex: Female
  Weight: 68.04 kg

DRUGS (11)
  1. PRADAXA [Suspect]
     Indication: ATRIAL FIBRILLATION
     Dosage: 150 MG
     Route: 065
     Dates: start: 20110913, end: 20110921
  2. TOPROL XL [Concomitant]
     Route: 065
  3. AMIODARONE [Concomitant]
     Dosage: 200 MG
     Route: 065
  4. CARDIZEM CD [Concomitant]
     Dosage: 240 MG
     Route: 065
  5. DIGOXIN [Concomitant]
     Route: 065
  6. REMERON [Concomitant]
     Dosage: 15 MG
     Route: 065
  7. VITAMIN B 12 [Concomitant]
     Route: 030
  8. LEVOTHYROXINE [Concomitant]
     Dosage: 88 MCG
     Route: 065
  9. TRICOR [Concomitant]
     Dosage: 145 MG
     Route: 065
  10. MEDPASS [Concomitant]
     Dosage: 270 ML
     Route: 065
  11. ZEMPLAR [Concomitant]
     Dosage: 1 MCG
     Route: 048

REACTIONS (5)
  - Gastrointestinal haemorrhage [Unknown]
  - Haemorrhagic anaemia [Unknown]
  - Coagulopathy [Unknown]
  - Renal failure acute [Unknown]
  - Renal tubular necrosis [Unknown]
